FAERS Safety Report 7744523-6 (Version None)
Quarter: 2011Q3

REPORT INFORMATION
  Report Type: 
  Country: None (occurrence: None)
  Receive Date: 20110912
  Receipt Date: 20110908
  Transmission Date: 20111222
  Serious: Yes (Hospitalization, Other)
  Sender: FDA-Public Use
  Company Number: US-AMGEN-USASP2011043180

PATIENT
  Age: 55 Year
  Sex: Female
  Weight: 45.4 kg

DRUGS (1)
  1. ENBREL [Suspect]
     Indication: RHEUMATOID ARTHRITIS
     Dosage: 25 MG, 2 TIMES/WK
     Dates: start: 20090601, end: 20100101

REACTIONS (7)
  - PAIN [None]
  - PARAESTHESIA [None]
  - NEUROLOGICAL SYMPTOM [None]
  - HYPOAESTHESIA [None]
  - IMMUNE SYSTEM DISORDER [None]
  - GAIT DISTURBANCE [None]
  - DYSPNOEA [None]
